FAERS Safety Report 25846077 (Version 1)
Quarter: 2025Q3

REPORT INFORMATION
  Report Type: Spontaneous
  Country: GB (occurrence: GB)
  Receive Date: 20250925
  Receipt Date: 20250925
  Transmission Date: 20251021
  Serious: Yes (Other)
  Sender: MICRO LABS
  Company Number: GB-MHRA-TPP1587051C11767808YC1757941530254

PATIENT
  Age: 49 Year
  Sex: Female
  Weight: 63 kg

DRUGS (5)
  1. AMOXICILLIN [Suspect]
     Active Substance: AMOXICILLIN
     Indication: Ill-defined disorder
  2. FERROUS SULFATE [Concomitant]
     Active Substance: FERROUS SULFATE
     Indication: Ill-defined disorder
     Dosage: TAKE ONE ONCE DAILY
     Dates: start: 20250718
  3. FERROUS FUMARATE [Concomitant]
     Active Substance: FERROUS FUMARATE
     Indication: Ill-defined disorder
     Dosage: TAKE ONE TABLET ONCE DAILY
     Dates: start: 20250915
  4. TRANEXAMIC ACID [Concomitant]
     Active Substance: TRANEXAMIC ACID
     Indication: Ill-defined disorder
     Dosage: 1G THREE TIMES DAILY FOR UP TO 4 DAYS, TO BE IN...
     Dates: start: 20250915
  5. ATORVASTATIN [Concomitant]
     Active Substance: ATORVASTATIN
     Indication: Ill-defined disorder
     Dosage: TAKE ONE DAILY
     Dates: start: 20250812

REACTIONS (1)
  - Drug reaction with eosinophilia and systemic symptoms [Recovering/Resolving]
